FAERS Safety Report 5099134-0 (Version None)
Quarter: 2006Q3

REPORT INFORMATION
  Report Type: 
  Country: None (occurrence: None)
  Receive Date: 20060731
  Receipt Date: 20051219
  Transmission Date: 20061208
  Serious: Yes (Hospitalization, Other)
  Sender: FDA-Public Use
  Company Number: 220406

PATIENT
  Age: 64 Year
  Sex: Female

DRUGS (3)
  1. HERCEPTIN [Suspect]
     Indication: BREAST CANCER METASTATIC
     Dosage: 6 MG/KG, Q3W, INTRAVENOUS
     Route: 042
     Dates: start: 20030101, end: 20050909
  2. AVASTIN [Suspect]
     Indication: BREAST CANCER METASTATIC
     Dosage: 10 MG/KG, Q3W, INTRAVENOUS
     Route: 042
     Dates: start: 20050908, end: 20050909
  3. CYCLOPHOSPHAMIDE [Concomitant]

REACTIONS (1)
  - MYOCARDIAL INFARCTION [None]
